FAERS Safety Report 15508007 (Version 1)
Quarter: 2018Q4

REPORT INFORMATION
  Report Type: Spontaneous
  Country: US (occurrence: US)
  Receive Date: 20181016
  Receipt Date: 20181016
  Transmission Date: 20190205
  Serious: Yes (Other)
  Sender: FDA-Public Use
  Company Number: US-TEVA-2018-US-961946

PATIENT
  Sex: Male

DRUGS (1)
  1. LEVALBUTEROL HYDROCHLORIDE TEVA [Suspect]
     Active Substance: LEVALBUTEROL HYDROCHLORIDE
     Dosage: FORM STRENGTH: 1.25MG IN 3ML
     Route: 065
     Dates: start: 20180830

REACTIONS (4)
  - Oral mucosal blistering [Recovering/Resolving]
  - Oral pain [Recovering/Resolving]
  - Candida infection [Recovering/Resolving]
  - Product substitution issue [Unknown]

NARRATIVE: CASE EVENT DATE: 20180901
